FAERS Safety Report 25953872 (Version 1)
Quarter: 2025Q4

REPORT INFORMATION
  Report Type: Spontaneous
  Country: EU (occurrence: EU)
  Receive Date: 20251023
  Receipt Date: 20251023
  Transmission Date: 20260118
  Serious: Yes (Life-Threatening, Other)
  Sender: MYLAN
  Company Number: None

PATIENT
  Age: 69 Year
  Sex: Female
  Weight: 50 kg

DRUGS (3)
  1. DOCETAXEL [Suspect]
     Active Substance: DOCETAXEL
     Indication: Metastases to lung
     Dosage: 40 MILLIGRAM/SQ. METER, 1 CYCCLICAL (DAY 8)
     Dates: start: 20171011, end: 2017
  2. GEMCITABINE [Suspect]
     Active Substance: GEMCITABINE
     Indication: Metastases to lung
     Dosage: 600 MILLIGRAM/SQ. METER, 1 CYCLICAL (DAYS 1-8)
     Dates: start: 20171011, end: 2017
  3. HEPARIN [Concomitant]
     Active Substance: HEPARIN SODIUM
     Dosage: UNK

REACTIONS (5)
  - Platelet toxicity [Recovered/Resolved]
  - Haematotoxicity [Recovered/Resolved]
  - Neutropenia [Recovered/Resolved]
  - Thrombocytopenia [Recovered/Resolved]
  - Anaemia [Recovered/Resolved]

NARRATIVE: CASE EVENT DATE: 20171017
